FAERS Safety Report 9706987 (Version 2)
Quarter: 2014Q2

REPORT INFORMATION
  Report Type: Spontaneous
  Country: US (occurrence: US)
  Receive Date: 20131125
  Receipt Date: 20140402
  Transmission Date: 20141212
  Serious: No
  Sender: FDA-Public Use
  Company Number: US-PFIZER INC-2013335936

PATIENT
  Age: 48 Year
  Sex: Female

DRUGS (4)
  1. EFFEXOR [Suspect]
     Indication: HOT FLUSH
     Dosage: 37.5 MG, 2X/DAY
  2. EFFEXOR [Suspect]
     Indication: MOOD SWINGS
  3. EFFEXOR [Suspect]
     Indication: POSTMENOPAUSE
  4. CLEOCIN [Concomitant]
     Dosage: 150 MG, 2X/DAY

REACTIONS (4)
  - Intentional product misuse [Unknown]
  - Hot flush [Unknown]
  - Mood swings [Unknown]
  - Abnormal behaviour [Unknown]
